FAERS Safety Report 6386056-8 (Version None)
Quarter: 2009Q4

REPORT INFORMATION
  Report Type: 
  Country: None (occurrence: None)
  Receive Date: 20091002
  Receipt Date: 20081120
  Transmission Date: 20100525
  Serious: No
  Sender: FDA-Public Use
  Company Number: US-ASTRAZENECA-2008UW26043

PATIENT
  Age: 65 Year
  Sex: Female
  Weight: 47.6 kg

DRUGS (3)
  1. ARIMIDEX [Suspect]
     Indication: BREAST CANCER FEMALE
     Route: 048
     Dates: start: 20081119
  2. XALATAN P EYE DROPS [Concomitant]
  3. ALFAGAN Z EYE DROPS [Concomitant]

REACTIONS (2)
  - DYSPNOEA [None]
  - PULMONARY CONGESTION [None]
